FAERS Safety Report 9146279 (Version 3)
Quarter: 2013Q2

REPORT INFORMATION
  Report Type: Spontaneous
  Country: AR (occurrence: AR)
  Receive Date: 20130307
  Receipt Date: 20130401
  Transmission Date: 20140414
  Serious: Yes (Other)
  Sender: FDA-Public Use
  Company Number: AR-PFIZER INC-2013074829

PATIENT
  Age: 60 Year
  Sex: Female

DRUGS (2)
  1. GENOTROPIN [Suspect]
     Indication: POSTPARTUM HYPOPITUITARISM
     Dosage: 0.2 MG, 7X/WEEK
     Dates: start: 20100607
  2. HYDROCORTISONE [Concomitant]
     Dosage: 1 DF, 3X/DAY

REACTIONS (6)
  - Intestinal perforation [Not Recovered/Not Resolved]
  - Hernia [Not Recovered/Not Resolved]
  - Hyperhidrosis [Not Recovered/Not Resolved]
  - Fatigue [Not Recovered/Not Resolved]
  - Nervousness [Unknown]
  - Agitation [Unknown]
